FAERS Safety Report 13951000 (Version 2)
Quarter: 2017Q3

REPORT INFORMATION
  Report Type: Report from Study
  Country: IT (occurrence: IT)
  Receive Date: 20170908
  Receipt Date: 20170925
  Transmission Date: 20171128
  Serious: Yes (Hospitalization, Other)
  Sender: FDA-Public Use
  Company Number: IT-PFIZER INC-2017383989

PATIENT
  Age: 37 Year
  Sex: Male
  Weight: 71.5 kg

DRUGS (1)
  1. INOTUZUMAB OZOGAMICIN [Suspect]
     Active Substance: INOTUZUMAB OZOGAMICIN
     Indication: LYMPHOCYTIC LEUKAEMIA
     Dosage: 0.9 MG, WEEKLY (QWK)
     Route: 042
     Dates: start: 20170810, end: 20170817

REACTIONS (2)
  - Neutropenia [Recovered/Resolved]
  - Pneumonia viral [Recovered/Resolved]

NARRATIVE: CASE EVENT DATE: 20170825
